FAERS Safety Report 10182949 (Version 1)
Quarter: 2014Q2

REPORT INFORMATION
  Report Type: Spontaneous
  Country: CH (occurrence: CH)
  Receive Date: 20140520
  Receipt Date: 20140520
  Transmission Date: 20141212
  Serious: Yes (Life-Threatening, Hospitalization)
  Sender: FDA-Public Use
  Company Number: CH-PFIZER INC-2014134182

PATIENT
  Age: 49 Year
  Sex: Female

DRUGS (6)
  1. LYRICA [Suspect]
     Dosage: 100 MG, 3X/DAY
     Route: 048
  2. LYRICA [Suspect]
     Dosage: 1100 MG, SINGLE
     Route: 048
     Dates: start: 20140502, end: 20140502
  3. ATARAX [Suspect]
     Dosage: 250 MG, SINGLE
     Route: 048
     Dates: start: 20140502, end: 20140502
  4. CYMBALTA [Suspect]
     Dosage: 60 MG, DAILY
     Route: 048
  5. CYMBALTA [Suspect]
     Dosage: 360 MG, SINGLE
     Route: 048
     Dates: start: 20140502, end: 20140502
  6. DALMADORM [Concomitant]
     Dosage: 30 MG, 1X/DAY
     Route: 048
     Dates: start: 20140502

REACTIONS (2)
  - Intentional overdose [Recovered/Resolved]
  - Hypersomnia [Recovered/Resolved]
